FAERS Safety Report 4618802-5 (Version None)
Quarter: 2005Q1

REPORT INFORMATION
  Report Type: 
  Country: None (occurrence: None)
  Receive Date: 20050323
  Receipt Date: 20050308
  Transmission Date: 20050727
  Serious: Yes (Hospitalization)
  Sender: FDA-Public Use
  Company Number: 200503IM000063

PATIENT
  Age: 47 Year
  Sex: Male
  Weight: 87.9978 kg

DRUGS (5)
  1. INFERGEN [Suspect]
     Indication: HEPATITIS C VIRUS
     Dosage: 15 UG, QD, SUBCUTANEOUS
     Route: 058
     Dates: start: 20040601, end: 20050218
  2. LASIX [Concomitant]
  3. LACTULOSE [Concomitant]
  4. PRILOSEC [Concomitant]
  5. SPIRONOLACTONE [Concomitant]

REACTIONS (2)
  - ASCITES [None]
  - ENCEPHALOPATHY [None]
